FAERS Safety Report 21283755 (Version 1)
Quarter: 2022Q3

REPORT INFORMATION
  Report Type: Other
  Country: US (occurrence: US)
  Receive Date: 20220901
  Receipt Date: 20220901
  Transmission Date: 20221027
  Serious: Yes (Hospitalization)
  Sender: FDA-Public Use
  Company Number: US-ABBVIE-21K-163-4211337-00

PATIENT
  Sex: Male

DRUGS (20)
  1. VENCLEXTA [Suspect]
     Active Substance: VENETOCLAX
     Indication: Acute myeloid leukaemia
     Dosage: TAKE 1 TABLET ONCE DAILY WITH FOOD AND GLASS OF WATER
     Route: 048
  2. VENCLEXTA [Suspect]
     Active Substance: VENETOCLAX
     Indication: Thrombocytopenia
     Dosage: TAKE 1 TABLET ON DAY 1,TAKE 2 TABLETS ONCE ON DAY 2,TAKE WITH FOOD AND FULL GLASS OF WATER
     Route: 048
  3. VENCLEXTA [Suspect]
     Active Substance: VENETOCLAX
     Indication: Anaemia
     Dosage: TAKE ON DAY 3 WITH FOOD AND FULL GLASS OF WATER
     Route: 048
  4. VENCLEXTA [Suspect]
     Active Substance: VENETOCLAX
     Dosage: TAKE 1 TABLET . TAKE 1 HOUR BEFORE OR 1 HOUR AFTER A MEAL
     Route: 048
  5. ACYCLOVIR [Concomitant]
     Active Substance: ACYCLOVIR
     Indication: Product used for unknown indication
     Route: 048
  6. ASPIRIN [Concomitant]
     Active Substance: ASPIRIN
     Indication: Product used for unknown indication
     Route: 048
  7. FOLIC ACID [Concomitant]
     Active Substance: FOLIC ACID
     Indication: Product used for unknown indication
     Route: 048
  8. LEVOFLOXACIN [Concomitant]
     Active Substance: LEVOFLOXACIN
     Indication: Product used for unknown indication
     Route: 048
  9. LOSARTAN [Concomitant]
     Active Substance: LOSARTAN
     Indication: Product used for unknown indication
     Route: 048
  10. NYSTATIN [Concomitant]
     Active Substance: NYSTATIN
     Indication: Product used for unknown indication
     Dosage: 100000 UNIT/GRAM TOPICAL POWDER?APPLY TO AFFECTED AREA
     Route: 061
  11. ONDANSETRON [Concomitant]
     Active Substance: ONDANSETRON
     Indication: Nausea
     Dosage: DISINTEGRATING TABLET?TAKE 1 BEFORE EACH DOSE OF CHEMOTHERAPY THEN TID PRN
     Route: 048
  12. PREDNISONE [Concomitant]
     Active Substance: PREDNISONE
     Indication: Product used for unknown indication
     Route: 048
  13. SIMVASTATIN [Concomitant]
     Active Substance: SIMVASTATIN
     Indication: Product used for unknown indication
     Dosage: 1/2 TAB
     Route: 048
  14. TERAZOSIN [Concomitant]
     Active Substance: TERAZOSIN HYDROCHLORIDE
     Indication: Product used for unknown indication
     Route: 048
  15. HERBALS\TURMERIC [Concomitant]
     Active Substance: HERBALS\TURMERIC
     Indication: Product used for unknown indication
     Route: 048
  16. GINGER [Concomitant]
     Active Substance: GINGER
     Indication: Product used for unknown indication
     Route: 048
  17. OLIVE [Concomitant]
     Active Substance: GREEN OLIVE
     Indication: Product used for unknown indication
     Route: 048
  18. OREGANO [Concomitant]
     Active Substance: OREGANO
     Indication: Product used for unknown indication
     Route: 048
  19. CAPRYLIC ACID [Concomitant]
     Active Substance: CAPRYLIC ACID
     Indication: Product used for unknown indication
     Route: 048
  20. VORICONAZOLE [Concomitant]
     Active Substance: VORICONAZOLE
     Indication: Product used for unknown indication
     Dosage: TAKE 1 TABLET 1 HR BEFORE OR 1 HR AFTER A MEAL
     Route: 048

REACTIONS (2)
  - Pneumonia [Unknown]
  - Full blood count abnormal [Unknown]

NARRATIVE: CASE EVENT DATE: 20210101
